FAERS Safety Report 8616639-3 (Version None)
Quarter: 2012Q3

REPORT INFORMATION
  Report Type: 
  Country: None (occurrence: None)
  Receive Date: 20120823
  Receipt Date: 20120816
  Transmission Date: 20120928
  Serious: Yes (Other)
  Sender: FDA-Public Use
  Company Number: US-009507513-1208USA008205

PATIENT

DRUGS (5)
  1. INTRON A [Suspect]
     Indication: HEPATITIS C
     Dosage: 3 DF, QD
     Route: 058
     Dates: start: 19920807, end: 19930806
  2. PEGASYS [Concomitant]
     Indication: HEPATITIS C
     Dosage: UNK
     Dates: start: 20120621
  3. REBETOL [Suspect]
     Dosage: UNK
     Route: 048
     Dates: start: 20120621
  4. REBETOL [Suspect]
     Indication: HEPATITIS C
     Dosage: UNK
     Route: 048
     Dates: start: 19920807, end: 19930806
  5. VICTRELIS [Suspect]
     Indication: HEPATITIS C
     Dosage: UNK
     Dates: start: 20120720

REACTIONS (6)
  - RETINAL OEDEMA [None]
  - DRUG INEFFECTIVE [None]
  - CRYING [None]
  - MALIGNANT MELANOMA [None]
  - VISUAL IMPAIRMENT [None]
  - OEDEMA PERIPHERAL [None]
